FAERS Safety Report 9163616 (Version 2)
Quarter: 2013Q1

REPORT INFORMATION
  Report Type: Spontaneous
  Country: JP (occurrence: JP)
  Receive Date: 20130314
  Receipt Date: 20130325
  Transmission Date: 20140127
  Serious: Yes (Other)
  Sender: FDA-Public Use
  Company Number: JP-B.I. PHARMACEUTICALS,INC./RIDGEFIELD-2013-BI-06874YA

PATIENT
  Age: 79 Year
  Sex: Male

DRUGS (4)
  1. NON-BI DRUG [Suspect]
     Indication: HYPERTONIC BLADDER
     Route: 048
     Dates: start: 20070718, end: 20130304
  2. FLIVAS (NAFTOPIDIL) [Concomitant]
     Dates: start: 200601
  3. CLARITIN (LORATADINE) [Concomitant]
     Indication: PRURITUS
     Route: 048
  4. ATARAX (HYDROXYZINE HYDROCHLORIDE) [Concomitant]
     Indication: PRURITUS
     Route: 048

REACTIONS (2)
  - Urinary retention [Not Recovered/Not Resolved]
  - Constipation [Not Recovered/Not Resolved]
